FAERS Safety Report 8572808-2 (Version None)
Quarter: 2012Q3

REPORT INFORMATION
  Report Type: 
  Country: None (occurrence: None)
  Receive Date: 20120806
  Receipt Date: 20120801
  Transmission Date: 20120928
  Serious: Yes (Death)
  Sender: FDA-Public Use
  Company Number: CZ-ASTRAZENECA-2012SE54426

PATIENT
  Age: 19 Year

DRUGS (1)
  1. LIDOCAINE [Suspect]

REACTIONS (1)
  - TOXICITY TO VARIOUS AGENTS [None]
